FAERS Safety Report 14733357 (Version 3)
Quarter: 2020Q4

REPORT INFORMATION
  Report Type: Spontaneous
  Country: US (occurrence: US)
  Receive Date: 20180409
  Receipt Date: 20201109
  Transmission Date: 20210113
  Serious: No
  Sender: FDA-Public Use
  Company Number: US-PFIZER INC-2018142020

PATIENT
  Age: 66 Year
  Sex: Female

DRUGS (2)
  1. WARFARIN SODIUM. [Concomitant]
     Active Substance: WARFARIN SODIUM
     Dosage: UNK
  2. XELJANZ XR [Suspect]
     Active Substance: TOFACITINIB CITRATE
     Indication: IDIOPATHIC URTICARIA
     Dosage: 11 MG, 1X/DAY
     Route: 048

REACTIONS (5)
  - Off label use [Unknown]
  - Gastric disorder [Recovered/Resolved]
  - Product use in unapproved indication [Unknown]
  - Arthropathy [Unknown]
  - Constipation [Unknown]
